FAERS Safety Report 11486436 (Version 1)
Quarter: 2015Q3

REPORT INFORMATION
  Report Type: Spontaneous
  Country: FR (occurrence: FR)
  Receive Date: 20150910
  Receipt Date: 20150910
  Transmission Date: 20151125
  Serious: Yes (Other)
  Sender: FDA-Public Use
  Company Number: FR-HOSPIRA-2994263

PATIENT
  Age: 68 Year
  Sex: Female

DRUGS (34)
  1. NIVESTIM [Concomitant]
     Active Substance: FILGRASTIM
     Indication: PRODUCT USED FOR UNKNOWN INDICATION
  2. AVASTIN [Suspect]
     Active Substance: BEVACIZUMAB
     Indication: COLORECTAL CANCER METASTATIC
     Route: 041
     Dates: start: 20150609
  3. EMEND [Suspect]
     Active Substance: APREPITANT
  4. EMEND [Suspect]
     Active Substance: APREPITANT
  5. EMEND [Suspect]
     Active Substance: APREPITANT
  6. FLUOROURACIL. [Concomitant]
     Active Substance: FLUOROURACIL
  7. PANTOPRAZOLE [Concomitant]
     Active Substance: PANTOPRAZOLE SODIUM
     Indication: PRODUCT USED FOR UNKNOWN INDICATION
  8. IRINOTECAN HOSPIRA [Suspect]
     Active Substance: IRINOTECAN
  9. OXALIPLATINE ACCORD [Suspect]
     Active Substance: OXALIPLATIN
     Indication: COLORECTAL CANCER METASTATIC
     Route: 041
     Dates: start: 20150609
  10. AVASTIN [Suspect]
     Active Substance: BEVACIZUMAB
  11. EMEND [Suspect]
     Active Substance: APREPITANT
  12. ATROPINE. [Concomitant]
     Active Substance: ATROPINE
     Indication: PREMEDICATION
  13. IRINOTECAN HOSPIRA [Suspect]
     Active Substance: IRINOTECAN
  14. IRINOTECAN HOSPIRA [Suspect]
     Active Substance: IRINOTECAN
  15. SOLU-MEDROL [Concomitant]
     Active Substance: METHYLPREDNISOLONE SODIUM SUCCINATE
     Indication: PREMEDICATION
  16. XANAX [Concomitant]
     Active Substance: ALPRAZOLAM
     Indication: PRODUCT USED FOR UNKNOWN INDICATION
  17. FLUOROURACIL. [Concomitant]
     Active Substance: FLUOROURACIL
  18. ZOPHREN                            /00955301/ [Concomitant]
     Active Substance: ONDANSETRON
     Indication: PREMEDICATION
  19. FOLINIC ACID [Concomitant]
     Active Substance: LEUCOVORIN
  20. FOLINIC ACID [Concomitant]
     Active Substance: LEUCOVORIN
  21. EMEND [Suspect]
     Active Substance: APREPITANT
     Indication: PROPHYLAXIS OF NAUSEA AND VOMITING
     Dosage: DURING 3 DAYS D1-D2-D3
     Route: 048
     Dates: start: 20150609
  22. FLUOROURACIL. [Concomitant]
     Active Substance: FLUOROURACIL
     Indication: COLORECTAL CANCER METASTATIC
     Route: 041
     Dates: start: 20150609
  23. PRIMPERAN [Concomitant]
     Active Substance: METOCLOPRAMIDE HYDROCHLORIDE
     Indication: PRODUCT USED FOR UNKNOWN INDICATION
  24. IRINOTECAN HOSPIRA [Suspect]
     Active Substance: IRINOTECAN
  25. IRINOTECAN HOSPIRA [Suspect]
     Active Substance: IRINOTECAN
  26. FOLINIC ACID [Concomitant]
     Active Substance: LEUCOVORIN
     Indication: COLORECTAL CANCER METASTATIC
     Dates: start: 20150609
  27. FOLINIC ACID [Concomitant]
     Active Substance: LEUCOVORIN
  28. SOLUPRED                           /00016201/ [Concomitant]
     Active Substance: PREDNISOLONE
     Indication: PRODUCT USED FOR UNKNOWN INDICATION
  29. AVASTIN [Suspect]
     Active Substance: BEVACIZUMAB
  30. AVASTIN [Suspect]
     Active Substance: BEVACIZUMAB
  31. FLUOROURACIL. [Concomitant]
     Active Substance: FLUOROURACIL
  32. FLUOROURACIL. [Concomitant]
     Active Substance: FLUOROURACIL
  33. FOLINIC ACID [Concomitant]
     Active Substance: LEUCOVORIN
  34. AVASTIN [Suspect]
     Active Substance: BEVACIZUMAB

REACTIONS (6)
  - Muscle contracture [Recovered/Resolved]
  - Muscle contractions involuntary [Recovered/Resolved]
  - Paraesthesia [Unknown]
  - Tetany [Unknown]
  - Drug interaction [Unknown]
  - Muscle spasms [Recovered/Resolved]

NARRATIVE: CASE EVENT DATE: 20150609
